FAERS Safety Report 16532943 (Version 1)
Quarter: 2019Q3

REPORT INFORMATION
  Report Type: Spontaneous
  Country: US (occurrence: US)
  Receive Date: 20190704
  Receipt Date: 20190704
  Transmission Date: 20191004
  Serious: No
  Sender: FDA-Public Use
  Company Number: US-RECKITT BENCKISER HEALTHCARE INT LIMITED-RB-83873-2019

PATIENT
  Age: 37 Year
  Sex: Male

DRUGS (1)
  1. MUCINEX DM [Suspect]
     Active Substance: DEXTROMETHORPHAN HYDROBROMIDE\GUAIFENESIN
     Indication: NASOPHARYNGITIS
     Dosage: 1200 MILLIGRAM, QD (TOOK 2 TABLETS ON 29-MAR-2019 AND AGAIN 2 TABLETS ON 30-MAR-2019).
     Route: 065
     Dates: start: 20190329, end: 20190330

REACTIONS (5)
  - Constipation [Not Recovered/Not Resolved]
  - Dry throat [Recovered/Resolved]
  - Euphoric mood [Recovered/Resolved]
  - Cough [Recovered/Resolved]
  - Erectile dysfunction [Not Recovered/Not Resolved]

NARRATIVE: CASE EVENT DATE: 2019
